FAERS Safety Report 10537416 (Version 1)
Quarter: 2014Q4

REPORT INFORMATION
  Report Type: Spontaneous
  Country: DE (occurrence: DE)
  Receive Date: 20141023
  Receipt Date: 20141023
  Transmission Date: 20150529
  Serious: Yes (Disabling, Other)
  Sender: FDA-Public Use
  Company Number: DE-BEH-2014045689

PATIENT
  Sex: Male
  Weight: 82.4 kg

DRUGS (2)
  1. PROTHROMBIN COMPLEX CONCENTRATE NOS [Suspect]
     Active Substance: COAGULATION FACTOR IX HUMAN\COAGULATION FACTOR VII HUMAN\COAGULATION FACTOR X HUMAN\PROTHROMBIN
     Indication: POST PROCEDURAL HAEMORRHAGE
  2. PLASMA-DERIVED FIX PRODUCTS? [Suspect]
     Active Substance: COAGULATION FACTOR IX HUMAN
     Indication: POST PROCEDURAL HAEMORRHAGE

REACTIONS (2)
  - Suspected transmission of an infectious agent via product [Not Recovered/Not Resolved]
  - Hepatitis C [Not Recovered/Not Resolved]

NARRATIVE: CASE EVENT DATE: 2003
